FAERS Safety Report 8033984-3 (Version None)
Quarter: 2012Q1

REPORT INFORMATION
  Report Type: 
  Country: None (occurrence: None)
  Receive Date: 20120110
  Receipt Date: 20120105
  Transmission Date: 20120608
  Serious: Yes (Hospitalization)
  Sender: FDA-Public Use
  Company Number: US-MERCK-1102USA02273

PATIENT
  Age: 49 Year
  Sex: Female
  Weight: 67 kg

DRUGS (4)
  1. FOSAMAX PLUS D [Suspect]
     Indication: OSTEOPOROSIS
     Route: 048
     Dates: start: 20081001, end: 20091001
  2. ALENDRONATE SODIUM [Suspect]
     Indication: OSTEOPOROSIS
     Route: 048
     Dates: start: 20081030, end: 20091005
  3. RECLAST [Concomitant]
     Indication: OSTEOPOROSIS
     Route: 065
     Dates: start: 20091201, end: 20101201
  4. FOSAMAX [Suspect]
     Indication: OSTEOPOROSIS
     Route: 048
     Dates: start: 19960101, end: 20081029

REACTIONS (5)
  - WRIST FRACTURE [None]
  - BREAST CANCER IN SITU [None]
  - PROCEDURAL HAEMORRHAGE [None]
  - FEMUR FRACTURE [None]
  - FIBROADENOMA OF BREAST [None]
